FAERS Safety Report 6832682-9 (Version None)
Quarter: 2010Q3

REPORT INFORMATION
  Report Type: 
  Country: None (occurrence: None)
  Receive Date: 20100712
  Receipt Date: 20070516
  Transmission Date: 20110219
  Serious: No
  Sender: FDA-Public Use
  Company Number: US-PFIZER INC-2007020098

PATIENT
  Sex: Female
  Weight: 91.6 kg

DRUGS (6)
  1. CHANTIX [Suspect]
     Indication: SMOKING CESSATION THERAPY
     Dates: start: 20070306, end: 20070311
  2. PREVACID [Concomitant]
  3. AMYCOR [Concomitant]
  4. ZETIA [Concomitant]
  5. LISINOPRIL [Concomitant]
  6. OMACOR [Concomitant]

REACTIONS (1)
  - DYSPNOEA [None]
